FAERS Safety Report 9230910 (Version 1)
Quarter: 2013Q2

REPORT INFORMATION
  Report Type: Spontaneous
  Country: NL (occurrence: NL)
  Receive Date: 20130415
  Receipt Date: 20130415
  Transmission Date: 20140414
  Serious: Yes (Death)
  Sender: FDA-Public Use
  Company Number: PHHY2013NL035813

PATIENT
  Sex: Male

DRUGS (3)
  1. ZOMETA [Suspect]
     Indication: LUNG CANCER METASTATIC
     Dosage: 4 MG, PER 100 ML ONCE PER 28 DAYS
     Route: 042
  2. ZOMETA [Suspect]
     Dosage: 4 MG, PER 100 ML ONCE PER 28 DAYS
     Route: 042
     Dates: start: 20130205
  3. ZOMETA [Suspect]
     Dosage: 4 MG, PER 100 ML ONCE PER 28 DAYS
     Route: 042
     Dates: start: 20130308

REACTIONS (2)
  - Euthanasia [Fatal]
  - General physical health deterioration [Fatal]
